FAERS Safety Report 8068943-8 (Version None)
Quarter: 2012Q1

REPORT INFORMATION
  Report Type: 
  Country: None (occurrence: None)
  Receive Date: 20120118
  Receipt Date: 20120102
  Transmission Date: 20120608
  Serious: Yes (Hospitalization)
  Sender: FDA-Public Use
  Company Number: FK201200053

PATIENT
  Age: 75 Year
  Sex: Male

DRUGS (8)
  1. FLUOROURACIL [Suspect]
     Indication: RECTAL CANCER STAGE III
     Dosage: 400 MG/M2
  2. VALSARTAN (VALSARTAN) (VALSARTAN) [Concomitant]
  3. DALTEPARIN (DALTEPARIN) (DALTEPARIN) [Concomitant]
  4. METFORMIN HCL [Concomitant]
  5. OXALIPLATIN [Suspect]
     Indication: RECTAL CANCER STAGE III
     Dosage: 85 MG/M2
  6. VENLAFAXINE HCL [Concomitant]
  7. CAPECITABINE [Suspect]
     Indication: RECTAL CANCER STAGE III
     Dosage: 1500 MG/M2
  8. LEUCOVORIN CALCIUM [Suspect]
     Indication: RECTAL CANCER STAGE III
     Dosage: 400 MG/M2

REACTIONS (14)
  - MITRAL VALVE INCOMPETENCE [None]
  - DIZZINESS [None]
  - LEFT VENTRICULAR DYSFUNCTION [None]
  - BRADYCARDIA [None]
  - SINUS ARREST [None]
  - CARDIOTOXICITY [None]
  - DEEP VEIN THROMBOSIS [None]
  - SYNCOPE [None]
  - DISORIENTATION [None]
  - PRESYNCOPE [None]
  - ATRIAL FIBRILLATION [None]
  - FLUSHING [None]
  - SINUS BRADYCARDIA [None]
  - BLOOD PRESSURE SYSTOLIC INCREASED [None]
